FAERS Safety Report 10947361 (Version 1)
Quarter: 2015Q1

REPORT INFORMATION
  Report Type: Spontaneous
  Country: US (occurrence: None)
  Receive Date: 20150220
  Receipt Date: 20150220
  Transmission Date: 20150721
  Serious: Yes (Other)
  Sender: FDA-Public Use
  Company Number: 20140811

PATIENT
  Age: 16 Year
  Sex: Female

DRUGS (5)
  1. INJECTAFER [Suspect]
     Active Substance: FERRIC CARBOXYMALTOSE
     Indication: IRON DEFICIENCY ANAEMIA
     Dosage: 750 MG IN 15 MIN
     Route: 042
     Dates: start: 20141204, end: 20141204
  2. PREVACID [Concomitant]
     Active Substance: LANSOPRAZOLE
  3. ETHINYL ESTRADIOL/DESOGESTEREL [Concomitant]
  4. INJECTAFER [Suspect]
     Active Substance: FERRIC CARBOXYMALTOSE
     Indication: VON WILLEBRAND^S DISEASE
     Dosage: 750 MG IN 15 MIN
     Route: 042
     Dates: start: 20141204, end: 20141204
  5. INJECTAFER [Suspect]
     Active Substance: FERRIC CARBOXYMALTOSE
     Indication: MENORRHAGIA
     Dosage: 750 MG IN 15 MIN
     Route: 042
     Dates: start: 20141204, end: 20141204

REACTIONS (1)
  - Hypersensitivity [None]

NARRATIVE: CASE EVENT DATE: 20141204
